FAERS Safety Report 4889884-0 (Version None)
Quarter: 2006Q1

REPORT INFORMATION
  Report Type: 
  Country: None (occurrence: None)
  Receive Date: 20060124
  Receipt Date: 20050803
  Transmission Date: 20060701
  Serious: Yes (Hospitalization, Disabling)
  Sender: FDA-Public Use
  Company Number: US-MERCK-0508USA01158

PATIENT
  Age: 58 Year
  Sex: Female
  Weight: 102 kg

DRUGS (11)
  1. VIOXX [Suspect]
     Indication: RHEUMATOID ARTHRITIS
     Route: 048
     Dates: start: 20000101, end: 20040901
  2. VIOXX [Suspect]
     Route: 048
     Dates: start: 20000101, end: 20040901
  3. ALLEGRA [Concomitant]
     Route: 065
  4. ATENOLOL [Concomitant]
     Route: 065
  5. FLONASE [Concomitant]
     Route: 065
  6. LEVOXYL [Concomitant]
     Route: 065
  7. PREDNISONE [Concomitant]
     Route: 065
  8. VICODIN [Concomitant]
     Route: 065
  9. SOMA [Concomitant]
     Route: 065
  10. NEURONTIN [Concomitant]
     Route: 065
  11. ACIPHEX [Concomitant]
     Route: 065

REACTIONS (15)
  - ACUTE MYOCARDIAL INFARCTION [None]
  - ANEURYSM [None]
  - ANHEDONIA [None]
  - ANXIETY [None]
  - BLOOD TRIGLYCERIDES INCREASED [None]
  - CAROTID ARTERY DISEASE [None]
  - CORONARY ARTERY DISEASE [None]
  - DEPRESSED MOOD [None]
  - EMBOLISM [None]
  - FATIGUE [None]
  - GROIN INFECTION [None]
  - NERVE ROOT INJURY [None]
  - POLYARTHRITIS [None]
  - SOMNOLENCE [None]
  - STRESS [None]
